FAERS Safety Report 7332783-5 (Version None)
Quarter: 2011Q1

REPORT INFORMATION
  Report Type: 
  Country: None (occurrence: None)
  Receive Date: 20110222
  Receipt Date: 20110209
  Transmission Date: 20110831
  Serious: Yes (Hospitalization)
  Sender: FDA-Public Use
  Company Number: 2011MA001244

PATIENT
  Age: 42 Year
  Sex: Female

DRUGS (9)
  1. URSODIOL [Concomitant]
  2. METOPROLOL [Concomitant]
  3. ZOPICLONE [Concomitant]
  4. PANTOPRAZOLE [Concomitant]
  5. VENLAFAXINE HYDROCHLORIDE [Suspect]
     Indication: DEPRESSION
     Dosage: 25 MG; PO
     Route: 048
  6. ROSIGLITAZONE [Concomitant]
  7. FUROSEMIDE [Concomitant]
  8. SIMVASTATIN [Concomitant]
  9. VALSARTAN [Concomitant]

REACTIONS (8)
  - DYSPNOEA [None]
  - FATIGUE [None]
  - TACHYCARDIA [None]
  - AGITATION [None]
  - ANTIPSYCHOTIC DRUG LEVEL ABOVE THERAPEUTIC [None]
  - TREATMENT FAILURE [None]
  - PARAESTHESIA [None]
  - TOXICITY TO VARIOUS AGENTS [None]
